FAERS Safety Report 17419642 (Version 1)
Quarter: 2020Q1

REPORT INFORMATION
  Report Type: Spontaneous
  Country: US (occurrence: US)
  Receive Date: 20200214
  Receipt Date: 20200214
  Transmission Date: 20200409
  Serious: Yes (Hospitalization)
  Sender: FDA-Public Use
  Company Number: US-HIKMA PHARMACEUTICALS USA INC.-US-H14001-20-00573

PATIENT
  Age: 19 Year
  Sex: Male
  Weight: 103.55 kg

DRUGS (8)
  1. METHOTREXATE. [Suspect]
     Active Substance: METHOTREXATE
     Route: 042
     Dates: start: 20191015
  2. PEGASPARGASE [Suspect]
     Active Substance: PEGASPARGASE
     Route: 042
     Dates: start: 20191015
  3. INCB018424 [Suspect]
     Active Substance: RUXOLITINIB
     Indication: B PRECURSOR TYPE ACUTE LEUKAEMIA
     Route: 048
     Dates: start: 20190218, end: 20190923
  4. PEGASPARGASE [Suspect]
     Active Substance: PEGASPARGASE
     Indication: B PRECURSOR TYPE ACUTE LEUKAEMIA
     Route: 042
     Dates: start: 20190218, end: 20190915
  5. VINCRISTINE [Suspect]
     Active Substance: VINCRISTINE
     Indication: B PRECURSOR TYPE ACUTE LEUKAEMIA
     Route: 042
     Dates: start: 20190218, end: 20190915
  6. INCB018424 [Suspect]
     Active Substance: RUXOLITINIB
     Route: 048
     Dates: start: 20191015
  7. METHOTREXATE. [Suspect]
     Active Substance: METHOTREXATE
     Indication: B PRECURSOR TYPE ACUTE LEUKAEMIA
     Route: 042
     Dates: start: 20190218, end: 20190915
  8. VINCRISTINE [Suspect]
     Active Substance: VINCRISTINE
     Route: 042
     Dates: start: 20191015

REACTIONS (7)
  - Nausea [Recovered/Resolved]
  - Pancytopenia [Recovered/Resolved]
  - Febrile neutropenia [Recovered/Resolved]
  - Fatigue [Recovered/Resolved]
  - Tachycardia [Recovered/Resolved]
  - Body temperature abnormal [Recovered/Resolved]
  - Hypertension [Recovered/Resolved]

NARRATIVE: CASE EVENT DATE: 20190923
